FAERS Safety Report 6877842-6 (Version None)
Quarter: 2010Q3

REPORT INFORMATION
  Report Type: 
  Country: None (occurrence: None)
  Receive Date: 20100727
  Receipt Date: 20070607
  Transmission Date: 20110219
  Serious: Yes (Hospitalization, Other)
  Sender: FDA-Public Use
  Company Number: US-PFIZER INC-2007007920

PATIENT
  Sex: Male
  Weight: 77.3 kg

DRUGS (4)
  1. CELEBREX [Suspect]
     Route: 048
  2. SEROQUEL [Concomitant]
  3. VALDECOXIB [Concomitant]
  4. XANAX [Concomitant]

REACTIONS (1)
  - MYOCARDIAL INFARCTION [None]
